FAERS Safety Report 23886078 (Version 2)
Quarter: 2024Q4

REPORT INFORMATION
  Report Type: Report from Study
  Country: US (occurrence: US)
  Receive Date: 20240522
  Receipt Date: 20241121
  Transmission Date: 20250115
  Serious: Yes (Other)
  Sender: GILEAD
  Company Number: US-GILEAD-2024-0673953

PATIENT
  Age: 38 Year
  Sex: Male

DRUGS (9)
  1. AXICABTAGENE CILOLEUCEL [Suspect]
     Active Substance: AXICABTAGENE CILOLEUCEL
     Indication: B-cell lymphoma
     Dosage: UNK (INFUSION)
     Route: 042
  2. AXICABTAGENE CILOLEUCEL [Suspect]
     Active Substance: AXICABTAGENE CILOLEUCEL
     Indication: Non-Hodgkin^s lymphoma
  3. RITUXIMAB [Concomitant]
     Active Substance: RITUXIMAB
  4. GEMCITABINE [Concomitant]
     Active Substance: GEMCITABINE
  5. DEXAMETHASONE [Concomitant]
     Active Substance: DEXAMETHASONE
  6. CYCLOPHOSPHAMIDE [Concomitant]
     Active Substance: CYCLOPHOSPHAMIDE
     Indication: Bone marrow conditioning regimen
  7. FLUDARABINE [Concomitant]
     Active Substance: FLUDARABINE PHOSPHATE
     Indication: Bone marrow conditioning regimen
  8. CISPLATIN [Concomitant]
     Active Substance: CISPLATIN
  9. CARBOPLATIN [Concomitant]
     Active Substance: CARBOPLATIN

REACTIONS (1)
  - Malignant melanoma [Unknown]
